FAERS Safety Report 5644132-9 (Version None)
Quarter: 2008Q1

REPORT INFORMATION
  Report Type: 
  Country: None (occurrence: None)
  Receive Date: 20080227
  Receipt Date: 20080219
  Transmission Date: 20080703
  Serious: Yes (Other)
  Sender: FDA-Public Use
  Company Number: CHPA2008US02867

PATIENT
  Age: 42 Year
  Sex: Female

DRUGS (4)
  1. BUCKLEY'S CHEST CONGESTION(GUAIFENESIN) LIQUID [Suspect]
     Indication: NASOPHARYNGITIS
     Dosage: 1 TSP, ONCE/SINGLE, ORAL
     Route: 048
     Dates: start: 20080212
  2. CLONIDINE [Concomitant]
  3. LABETALOL HCL [Concomitant]
  4. GABAPENTIN [Concomitant]

REACTIONS (11)
  - ASTHENIA [None]
  - BACK PAIN [None]
  - BLINDNESS UNILATERAL [None]
  - DIZZINESS [None]
  - FALL [None]
  - HEADACHE [None]
  - HYPOTENSION [None]
  - LOSS OF CONSCIOUSNESS [None]
  - PULMONARY CONGESTION [None]
  - SYNCOPE [None]
  - VISION BLURRED [None]
